FAERS Safety Report 25716552 (Version 1)
Quarter: 2025Q3

REPORT INFORMATION
  Report Type: Spontaneous
  Country: EU (occurrence: EU)
  Receive Date: 20250822
  Receipt Date: 20250822
  Transmission Date: 20251021
  Serious: Yes (Hospitalization, Other)
  Sender: CADILA
  Company Number: EU-CPL-005647

PATIENT
  Age: 43 Year
  Sex: Female

DRUGS (1)
  1. METRONIDAZOLE [Suspect]
     Active Substance: METRONIDAZOLE
     Indication: Liver abscess

REACTIONS (2)
  - Toxic encephalopathy [Recovered/Resolved]
  - Cerebellar syndrome [Recovered/Resolved]
